FAERS Safety Report 6019213-0 (Version None)
Quarter: 2008Q4

REPORT INFORMATION
  Report Type: 
  Country: None (occurrence: None)
  Receive Date: 20081224
  Receipt Date: 20081216
  Transmission Date: 20090506
  Serious: Yes (Life-Threatening, Hospitalization)
  Sender: FDA-Public Use
  Company Number: DK-BAYER-200827990GPV

PATIENT
  Age: 18 Year
  Sex: Female

DRUGS (1)
  1. YASMIN [Suspect]
     Indication: CONTRACEPTION
     Route: 048
     Dates: start: 20080311, end: 20080801

REACTIONS (5)
  - COR PULMONALE ACUTE [None]
  - DYSPNOEA [None]
  - PALPITATIONS [None]
  - PULMONARY EMBOLISM [None]
  - SYNCOPE [None]
